FAERS Safety Report 17360812 (Version 1)
Quarter: 2020Q1

REPORT INFORMATION
  Report Type: Spontaneous
  Country: CA (occurrence: CA)
  Receive Date: 20200203
  Receipt Date: 20200203
  Transmission Date: 20200409
  Serious: Yes (Other)
  Sender: FDA-Public Use
  Company Number: CA-TEVA-2019-CA-1106741

PATIENT
  Age: 84 Year
  Sex: Female

DRUGS (40)
  1. BETAHISTINE [Suspect]
     Active Substance: BETAHISTINE
     Indication: VERTIGO
     Dosage: 16 MILLIGRAM DAILY;
     Route: 065
  2. BETAHISTINE [Suspect]
     Active Substance: BETAHISTINE
     Route: 065
  3. TRAZODONE [Suspect]
     Active Substance: TRAZODONE HYDROCHLORIDE
     Dosage: 50 MILLIGRAM DAILY;
     Route: 048
  4. BISOPROLOL [Suspect]
     Active Substance: BISOPROLOL
     Dosage: 1 DOSAGE FORMS DAILY;
     Route: 065
  5. LEVOTHYROXINE. [Suspect]
     Active Substance: LEVOTHYROXINE
     Dosage: 1 DOSAGE FORMS DAILY;
     Route: 065
  6. APO-LEVOCARB CR [Suspect]
     Active Substance: CARBIDOPA\LEVODOPA
     Dosage: 1 DOSAGE FORMS DAILY;
     Route: 065
  7. BETAHISTINE [Suspect]
     Active Substance: BETAHISTINE
     Route: 065
  8. LEVODOPA-CARBIDOPA [Suspect]
     Active Substance: CARBIDOPA\LEVODOPA
     Indication: PARKINSON^S DISEASE
     Route: 065
  9. RISEDRONATE SODIUM. [Suspect]
     Active Substance: RISEDRONATE SODIUM
     Dosage: 5 MILLIGRAM DAILY;
     Route: 065
  10. BISOPROLOL [Suspect]
     Active Substance: BISOPROLOL
     Route: 065
  11. CETIRIZINE [Suspect]
     Active Substance: CETIRIZINE HYDROCHLORIDE
     Dosage: 20 MILLIGRAM DAILY;
     Route: 065
  12. APO-LEVOCARB CR [Suspect]
     Active Substance: CARBIDOPA\LEVODOPA
     Indication: PARKINSON^S DISEASE
     Route: 065
  13. CITALOPRAM [Suspect]
     Active Substance: CITALOPRAM HYDROBROMIDE
     Indication: DEPRESSED MOOD
     Dosage: 5 MILLIGRAM DAILY;
     Route: 065
  14. ROSUVASTATIN. [Suspect]
     Active Substance: ROSUVASTATIN
     Indication: HAEMORRHAGIC STROKE
     Dosage: 20 MILLIGRAM DAILY;
     Route: 065
  15. BISOPROLOL [Suspect]
     Active Substance: BISOPROLOL
     Indication: PRODUCT USED FOR UNKNOWN INDICATION
     Dosage: 1 DOSAGE FORMS DAILY;
     Route: 065
  16. CETIRIZINE [Suspect]
     Active Substance: CETIRIZINE HYDROCHLORIDE
     Indication: EYE PRURITUS
     Dosage: 20 MILLIGRAM DAILY;
     Route: 065
  17. TIMOLOL. [Suspect]
     Active Substance: TIMOLOL
     Dosage: 2 DOSAGE FORMS DAILY;
     Route: 047
  18. MIRTAZAPINE. [Suspect]
     Active Substance: MIRTAZAPINE
     Indication: DEPRESSED MOOD
     Dosage: 7.5 MILLIGRAM DAILY;
     Route: 065
  19. BISOPROLOL [Suspect]
     Active Substance: BISOPROLOL
     Dosage: 1 DOSAGE FORMS DAILY;
     Route: 065
  20. ERGOCALCIFEROL. [Suspect]
     Active Substance: ERGOCALCIFEROL
     Route: 065
  21. ERGOCALCIFEROL. [Suspect]
     Active Substance: ERGOCALCIFEROL
     Dosage: 1 DOSAGE FORMS DAILY;
     Route: 065
  22. RISEDRONATE SODIUM. [Suspect]
     Active Substance: RISEDRONATE SODIUM
     Indication: OSTEOPOROSIS
     Dosage: 150 MILLIGRAM DAILY;
     Route: 065
  23. TRAZODONE [Suspect]
     Active Substance: TRAZODONE HYDROCHLORIDE
     Indication: INSOMNIA
     Dosage: 50 MILLIGRAM DAILY;
     Route: 048
  24. LEVOTHYROXINE. [Suspect]
     Active Substance: LEVOTHYROXINE
     Indication: HYPOTHYROIDISM
     Dosage: .05 MILLIGRAM DAILY;
     Route: 065
  25. RISEDRONATE SODIUM. [Suspect]
     Active Substance: RISEDRONATE SODIUM
     Route: 065
  26. ROSUVASTATIN. [Suspect]
     Active Substance: ROSUVASTATIN
     Route: 065
  27. METOCLOPRAMIDE. [Suspect]
     Active Substance: METOCLOPRAMIDE
     Indication: DIVERTICULITIS
     Dosage: 30 MILLIGRAM DAILY;
     Route: 065
  28. TIMOLOL. [Suspect]
     Active Substance: TIMOLOL
     Indication: GLAUCOMA
     Route: 047
  29. CANDESARTAN. [Suspect]
     Active Substance: CANDESARTAN
     Indication: HYPERTENSION
     Dosage: 4 MILLIGRAM DAILY;
     Route: 065
  30. BETAHISTINE [Suspect]
     Active Substance: BETAHISTINE
     Dosage: 24 MILLIGRAM DAILY;
     Route: 065
  31. DIMENHYDRINATE. [Suspect]
     Active Substance: DIMENHYDRINATE
     Indication: NAUSEA
     Route: 065
  32. TRAZODONE [Suspect]
     Active Substance: TRAZODONE HYDROCHLORIDE
     Dosage: 25 MILLIGRAM DAILY;
     Route: 048
  33. METOCLOPRAMIDE. [Suspect]
     Active Substance: METOCLOPRAMIDE
     Route: 065
  34. APO-LEVOCARB CR [Suspect]
     Active Substance: CARBIDOPA\LEVODOPA
     Dosage: 3 DOSAGE FORMS DAILY;
     Route: 065
  35. BETAHISTINE [Suspect]
     Active Substance: BETAHISTINE
     Dosage: 8 MILLIGRAM DAILY;
     Route: 065
  36. PANTOPRAZOLE [Suspect]
     Active Substance: PANTOPRAZOLE
     Indication: NAUSEA
     Dosage: 40 MILLIGRAM DAILY;
     Route: 065
  37. RISEDRONATE SODIUM. [Suspect]
     Active Substance: RISEDRONATE SODIUM
     Route: 065
  38. RISEDRONATE SODIUM. [Suspect]
     Active Substance: RISEDRONATE SODIUM
     Dosage: 150 MILLIGRAM DAILY;
     Route: 065
  39. ERGOCALCIFEROL. [Suspect]
     Active Substance: ERGOCALCIFEROL
     Indication: OSTEOPOROSIS
     Dosage: 1 DOSAGE FORMS DAILY;
     Route: 065
  40. APO-LEVOCARB CR [Suspect]
     Active Substance: CARBIDOPA\LEVODOPA
     Dosage: 1 DOSAGE FORMS DAILY;
     Route: 065

REACTIONS (25)
  - Hypersensitivity [Not Recovered/Not Resolved]
  - Depressed mood [Not Recovered/Not Resolved]
  - Condition aggravated [Not Recovered/Not Resolved]
  - Drug ineffective [Not Recovered/Not Resolved]
  - Fall [Not Recovered/Not Resolved]
  - Hypotension [Not Recovered/Not Resolved]
  - Incorrect dose administered [Unknown]
  - Vitamin B12 decreased [Not Recovered/Not Resolved]
  - Product use in unapproved indication [Not Recovered/Not Resolved]
  - Abdominal distension [Not Recovered/Not Resolved]
  - Fatigue [Not Recovered/Not Resolved]
  - Nausea [Not Recovered/Not Resolved]
  - Vertigo [Not Recovered/Not Resolved]
  - Vomiting [Not Recovered/Not Resolved]
  - Constipation [Not Recovered/Not Resolved]
  - Decreased appetite [Not Recovered/Not Resolved]
  - Loss of personal independence in daily activities [Unknown]
  - Parkinson^s disease [Not Recovered/Not Resolved]
  - Off label use [Not Recovered/Not Resolved]
  - Dizziness [Not Recovered/Not Resolved]
  - Lacrimation increased [Not Recovered/Not Resolved]
  - Underdose [Unknown]
  - Wrong technique in product usage process [Unknown]
  - Dry mouth [Not Recovered/Not Resolved]
  - Eye pruritus [Not Recovered/Not Resolved]
